FAERS Safety Report 4806999-3 (Version None)
Quarter: 2005Q4

REPORT INFORMATION
  Report Type: 
  Country: None (occurrence: None)
  Receive Date: 20051024
  Receipt Date: 20051013
  Transmission Date: 20060501
  Serious: Yes (Other)
  Sender: FDA-Public Use
  Company Number: GB-JNJFOC-20050802713

PATIENT
  Sex: Male
  Weight: 75 kg

DRUGS (11)
  1. REMICADE [Suspect]
     Indication: RHEUMATOID ARTHRITIS
     Route: 042
  2. METHOTREXATE [Concomitant]
     Indication: RHEUMATOID ARTHRITIS
     Route: 065
  3. PREDNISOLONE [Concomitant]
     Route: 065
  4. SALBUTAMOL [Concomitant]
     Route: 065
  5. PULMICORT [Concomitant]
     Route: 065
  6. ORUVAIL [Concomitant]
     Route: 065
  7. ACETAMINOPHEN [Concomitant]
     Route: 065
  8. SERETIDE [Concomitant]
     Route: 055
  9. SERETIDE [Concomitant]
     Indication: BRONCHIECTASIS
     Dosage: 2 PUFFS BD
     Route: 055
  10. ATROVENT [Concomitant]
     Indication: BRONCHIECTASIS
     Dosage: 2 PUFFS
     Route: 055
  11. FOLIC ACID [Concomitant]
     Route: 065

REACTIONS (2)
  - CHRONIC LYMPHOCYTIC LEUKAEMIA [None]
  - LYMPHOCYTOSIS [None]
